FAERS Safety Report 24182452 (Version 1)
Quarter: 2024Q3

REPORT INFORMATION
  Report Type: Spontaneous
  Country: ES (occurrence: ES)
  Receive Date: 20240807
  Receipt Date: 20240807
  Transmission Date: 20241016
  Serious: Yes (Death, Other)
  Sender: AMGEN
  Company Number: ES-AMGEN-ESPSP2024150873

PATIENT

DRUGS (3)
  1. CARFILZOMIB [Suspect]
     Active Substance: CARFILZOMIB
     Indication: Plasma cell myeloma
     Dosage: UNK 20/36 MG/M2 ONCE DAILY ON DAYS 1,2, 8,9, AND 15,16
     Route: 042
  2. LENALIDOMIDE [Concomitant]
     Active Substance: LENALIDOMIDE
     Indication: Plasma cell myeloma
     Dosage: 25 MILLIGRAM (25 MG ONCE DAILY ON DAYS 1 TO 21)
     Route: 048
  3. DEXAMETHASONE [Concomitant]
     Active Substance: DEXAMETHASONE
     Indication: Plasma cell myeloma
     Dosage: 40 MILLIGRAM ONCE A WEEK/(20 MG ONCE A WEEK)
     Route: 065

REACTIONS (13)
  - Plasma cell myeloma [Fatal]
  - Respiratory tract infection [Fatal]
  - Lung neoplasm malignant [Fatal]
  - Prostate cancer [Fatal]
  - Myelodysplastic syndrome [Fatal]
  - Ischaemic stroke [Fatal]
  - Cardiac arrest [Fatal]
  - Neutropenia [Unknown]
  - Thrombocytopenia [Unknown]
  - Infection [Unknown]
  - Rash [Unknown]
  - Cardiac failure [Unknown]
  - Gastrointestinal toxicity [Unknown]
